FAERS Safety Report 10331097 (Version 1)
Quarter: 2014Q3

REPORT INFORMATION
  Report Type: Spontaneous
  Country: DE (occurrence: DE)
  Receive Date: 20140722
  Receipt Date: 20140722
  Transmission Date: 20150326
  Serious: Yes (Congenital Anomaly, Other)
  Sender: FDA-Public Use
  Company Number: DE-ASTRAZENECA-2014SE51776

PATIENT
  Age: 1 Day
  Sex: Male
  Weight: 4.2 kg

DRUGS (7)
  1. PREPIDIL [Concomitant]
     Active Substance: DINOPROSTONE
     Indication: LABOUR INDUCTION
     Dosage: 0.5 MG/ML
     Route: 064
     Dates: start: 20140401, end: 20140401
  2. CASTER OIL [Concomitant]
     Indication: LABOUR INDUCTION
     Route: 064
     Dates: start: 20140401, end: 20140401
  3. DIAZEPAM. [Concomitant]
     Active Substance: DIAZEPAM
     Indication: BIPOLAR DISORDER
     Route: 064
     Dates: start: 20131010, end: 20140215
  4. ATOSIL [Concomitant]
     Active Substance: PROMETHAZINE HYDROCHLORIDE
     Indication: BIPOLAR DISORDER
     Route: 064
     Dates: start: 20131010, end: 20140115
  5. HALOPERIDOL. [Suspect]
     Active Substance: HALOPERIDOL
     Indication: BIPOLAR DISORDER
     Dosage: 15 [MG/D ]/ DOSE REDUCTION IN JANUARY, 5 MG THREE TIMES A DAY
     Route: 064
     Dates: start: 20131010, end: 20140401
  6. FOLIC ACID. [Concomitant]
     Active Substance: FOLIC ACID
     Indication: PROPHYLAXIS OF NEURAL TUBE DEFECT
     Route: 064
  7. SEROQUEL [Suspect]
     Active Substance: QUETIAPINE FUMARATE
     Indication: PSYCHOTIC DISORDER
     Route: 064
     Dates: start: 20131009, end: 20140401

REACTIONS (3)
  - Drug withdrawal syndrome neonatal [Not Recovered/Not Resolved]
  - Kidney duplex [Not Recovered/Not Resolved]
  - Cerebral calcification [Not Recovered/Not Resolved]

NARRATIVE: CASE EVENT DATE: 20140401
